FAERS Safety Report 6339909-0 (Version None)
Quarter: 2009Q3

REPORT INFORMATION
  Report Type: 
  Country: None (occurrence: None)
  Receive Date: 20090903
  Receipt Date: 20090828
  Transmission Date: 20100115
  Serious: Yes (Death, Hospitalization)
  Sender: FDA-Public Use
  Company Number: DE-TEVA-207675ISR

PATIENT
  Age: 89 Year
  Sex: Female
  Weight: 71 kg

DRUGS (8)
  1. PANTOPRAZOLE SODIUM [Suspect]
     Indication: PROPHYLAXIS AGAINST GASTROINTESTINAL ULCER
     Route: 048
     Dates: start: 20080101
  2. MOXIFLOXACIN HCL [Interacting]
     Indication: PNEUMONIA
     Route: 048
     Dates: start: 20090430, end: 20090501
  3. CEFOTIAM HYDROCHLORIDE [Interacting]
     Indication: PNEUMONIA
     Route: 042
     Dates: start: 20090425, end: 20090429
  4. CALCILAC KT (COLECALCIFEROL / CALCIUM CARBONATE) [Concomitant]
     Indication: BREAST CANCER METASTATIC
     Dosage: 1 DF= 400IU COLECALCIFEROL +500MG CALCIUMCARBONAT
     Route: 048
     Dates: start: 20090409
  5. FENTANYL [Concomitant]
     Indication: BREAST CANCER METASTATIC
     Dosage: 1 PFLASTER ALLE 72H
     Route: 062
     Dates: start: 20080101
  6. METAMIZOLE [Concomitant]
     Indication: PAIN
     Dosage: 750MG~30GGT
     Route: 048
     Dates: start: 20080101
  7. METRONIDAZOLE [Concomitant]
     Indication: PNEUMONIA
     Route: 042
     Dates: start: 20090425, end: 20090429
  8. TORASEMIDE [Concomitant]
     Indication: RENAL FAILURE CHRONIC
     Route: 048
     Dates: start: 20090409, end: 20090501

REACTIONS (1)
  - PSEUDOMEMBRANOUS COLITIS [None]
